FAERS Safety Report 16033442 (Version 1)
Quarter: 2019Q1

REPORT INFORMATION
  Report Type: Report from Study
  Country: CN (occurrence: CN)
  Receive Date: 20190305
  Receipt Date: 20190305
  Transmission Date: 20190418
  Serious: Yes (Other)
  Sender: FDA-Public Use
  Company Number: CN-ROCHE-2275132

PATIENT
  Age: 82 Year
  Sex: Female
  Weight: 48 kg

DRUGS (4)
  1. BEVACIZUMAB. [Suspect]
     Active Substance: BEVACIZUMAB
     Indication: HEPATOCELLULAR CARCINOMA
     Dosage: DATE OF MOST RECENT DOSE OF BEVACIZUMAB (753 MG) DOSE OF BEVACIZUMAB?PRIOR TO AE ONSET: 28/DEC/2018
     Route: 042
     Dates: start: 20181207
  2. COMPOUND GLYCYRRHIZIN (AMINOACETIC ACID/MONOAMMONIUM GLYCYRRHIZINATE/M [Concomitant]
     Route: 065
     Dates: start: 20180915
  3. ATEZOLIZUMAB. [Suspect]
     Active Substance: ATEZOLIZUMAB
     Indication: HEPATOCELLULAR CARCINOMA
     Dosage: DATE OF MOST RECENT DOSE OF ATEZOLIZUMAB (1200 MG) PRIOR TO AE ONSET: 28/DEC/2018
     Route: 042
     Dates: start: 20181207
  4. ENTECAVIR. [Concomitant]
     Active Substance: ENTECAVIR
     Route: 065
     Dates: start: 20180808

REACTIONS (1)
  - Embolism [Not Recovered/Not Resolved]

NARRATIVE: CASE EVENT DATE: 20190117
